FAERS Safety Report 6678576-3 (Version None)
Quarter: 2010Q2

REPORT INFORMATION
  Report Type: 
  Country: None (occurrence: None)
  Receive Date: 20100408
  Receipt Date: 20100325
  Transmission Date: 20101027
  Serious: Yes (Other)
  Sender: FDA-Public Use
  Company Number: 549698

PATIENT
  Age: 78 Year
  Sex: Female
  Weight: 60.2 kg

DRUGS (9)
  1. METHOTREXATE [Suspect]
     Indication: RHEUMATOID ARTHRITIS
     Dosage: 15 MG ORAL; 15 MG  SUBCUTANEOUS
     Route: 048
     Dates: start: 19940601, end: 20010801
  2. METHOTREXATE [Suspect]
     Indication: RHEUMATOID ARTHRITIS
     Dosage: 15 MG ORAL; 15 MG  SUBCUTANEOUS
     Route: 048
     Dates: start: 20010801, end: 20100225
  3. (GLUCOSAMINE) [Concomitant]
  4. LANSOPRAZOLE [Concomitant]
  5. (OMEGA-3 /00931501/) [Concomitant]
  6. (PREMIQUE) [Concomitant]
  7. (SIMVASTATTN) [Concomitant]
  8. SOTALOL HCL [Concomitant]
  9. (SULPHASALAZINE) [Concomitant]

REACTIONS (5)
  - DISCOMFORT [None]
  - INJECTION SITE URTICARIA [None]
  - PARAESTHESIA [None]
  - PRURITUS [None]
  - RASH [None]
